FAERS Safety Report 21254728 (Version 1)
Quarter: 2022Q3

REPORT INFORMATION
  Report Type: Spontaneous
  Country: US (occurrence: None)
  Receive Date: 20220824
  Receipt Date: 20220824
  Transmission Date: 20221027
  Serious: No
  Sender: FDA-Public Use
  Company Number: None

PATIENT
  Age: 42 Year
  Sex: Female
  Weight: 70.2 kg

DRUGS (1)
  1. VENOFER [Suspect]
     Active Substance: IRON SUCROSE
     Indication: Anaemia
     Dosage: OTHER FREQUENCY : 5 DOSES OVER 2 WEE;?
     Route: 041
     Dates: start: 20220824, end: 20220824

REACTIONS (2)
  - Infusion site extravasation [None]
  - Refusal of treatment by patient [None]

NARRATIVE: CASE EVENT DATE: 20220824
